FAERS Safety Report 23214097 (Version 1)
Quarter: 2023Q4

REPORT INFORMATION
  Report Type: Spontaneous
  Country: AU (occurrence: AU)
  Receive Date: 20231121
  Receipt Date: 20231121
  Transmission Date: 20240109
  Serious: Yes (Other)
  Sender: FDA-Public Use
  Company Number: AU-BAYER-2023A164121

PATIENT

DRUGS (1)
  1. VITRAKVI [Suspect]
     Active Substance: LAROTRECTINIB
     Indication: Desmoplastic small round cell tumour
     Dosage: UNK

REACTIONS (2)
  - Desmoplastic small round cell tumour [None]
  - Off label use [None]
